FAERS Safety Report 20461650 (Version 1)
Quarter: 2022Q1

REPORT INFORMATION
  Report Type: Spontaneous
  Country: US (occurrence: None)
  Receive Date: 20220211
  Receipt Date: 20220211
  Transmission Date: 20220423
  Serious: Yes (Hospitalization)
  Sender: FDA-Public Use
  Company Number: None

PATIENT
  Age: 52 Year
  Sex: Female

DRUGS (1)
  1. DEFERASIROX [Suspect]
     Active Substance: DEFERASIROX
     Dosage: FREQUENCY : DAILY;?
     Route: 048
     Dates: start: 202111

REACTIONS (5)
  - Malaise [None]
  - Haemoglobin decreased [None]
  - COVID-19 [None]
  - Therapy interrupted [None]
  - Treatment delayed [None]

NARRATIVE: CASE EVENT DATE: 20220101
